FAERS Safety Report 14181311 (Version 2)
Quarter: 2017Q4

REPORT INFORMATION
  Report Type: Report from Study
  Country: CN (occurrence: CN)
  Receive Date: 20171112
  Receipt Date: 20171124
  Transmission Date: 20180321
  Serious: Yes (Hospitalization)
  Sender: FDA-Public Use
  Company Number: CN-AMGEN-CHNCT2017169720

PATIENT
  Age: 67 Year
  Sex: Male
  Weight: 51 kg

DRUGS (32)
  1. CALCIUM GLUCONATE. [Concomitant]
     Active Substance: CALCIUM GLUCONATE
     Dosage: 10 ML, UNK
     Route: 042
     Dates: start: 20170906, end: 20170906
  2. FRUCTOSE [Concomitant]
     Active Substance: FRUCTOSE
     Dosage: 25 G, UNK
     Route: 042
     Dates: start: 20170801, end: 20170810
  3. CEFOPERAZONE W/SULBACTAM [Concomitant]
     Active Substance: CEFOPERAZONE\SULBACTAM
     Indication: ANTI-INFECTIVE THERAPY
     Dosage: 3 G, UNK
     Route: 042
     Dates: start: 20171106, end: 20171111
  4. BARBITAL [Concomitant]
     Active Substance: BARBITAL
     Dosage: UNK
     Route: 030
     Dates: start: 20170827, end: 20170827
  5. SULPERAZONE [Concomitant]
     Active Substance: CEFOPERAZONE SODIUM\SULBACTAM SODIUM
     Dosage: 0.2-2.25 G, UNK
     Route: 042
     Dates: start: 20170831, end: 20170911
  6. BCG [Concomitant]
     Active Substance: BCG VACCINE
     Dosage: 50 UNK, UNK
     Route: 058
     Dates: start: 20170912, end: 20170912
  7. PIPERACILLIN/TAZOBACTAM [Concomitant]
     Active Substance: PIPERACILLIN SODIUM\TAZOBACTAM SODIUM
     Dosage: 4.5 G, UNK
     Route: 042
     Dates: start: 20170802, end: 20170808
  8. BENZBROMARONE [Concomitant]
     Active Substance: BENZBROMARONE
     Dosage: 50 MG, UNK
     Route: 048
     Dates: start: 20170802, end: 20170919
  9. GLUCOSE [Concomitant]
     Active Substance: DEXTROSE
     Dosage: 250 ML, UNK
     Route: 042
     Dates: start: 20170809, end: 20171017
  10. PENICILLIN SODIUM [Concomitant]
     Active Substance: PENICILLIN G SODIUM
     Dosage: 80 MG, UNK
     Route: 058
     Dates: start: 20170802, end: 20170802
  11. FUROSEMIDE. [Concomitant]
     Active Substance: FUROSEMIDE
     Dosage: 20 MUG-20 MG, UNK
     Route: 048
     Dates: start: 20170801, end: 20170919
  12. AMINOPHENAZONE COMPOUND [Concomitant]
     Dosage: UNK
     Route: 030
     Dates: start: 20170827, end: 20170827
  13. MOXIFLOXACIN. [Concomitant]
     Active Substance: MOXIFLOXACIN
     Dosage: 0.4 G, UNK
     Dates: start: 20170911, end: 20170927
  14. SPIRONOLACTONE. [Concomitant]
     Active Substance: SPIRONOLACTONE
     Dosage: 20 MG, UNK
     Route: 048
     Dates: start: 20170801, end: 20170919
  15. MONTMORILLONITE [Concomitant]
     Active Substance: MONTMORILLONITE
     Dosage: 3 G, UNK
     Route: 048
     Dates: start: 20171010, end: 20171010
  16. LIDOCAINE. [Concomitant]
     Active Substance: LIDOCAINE
     Dosage: 5 ML, UNK
     Route: 042
     Dates: start: 20170801, end: 20170801
  17. CARFILZOMIB [Suspect]
     Active Substance: CARFILZOMIB
     Indication: PLASMA CELL MYELOMA
     Dosage: 41 MG, PER CHEMO REGIM
     Route: 042
     Dates: start: 20170802, end: 20171101
  18. GLUTATHIONE [Concomitant]
     Active Substance: GLUTATHIONE
     Dosage: 3.6 G, UNK
     Route: 042
     Dates: start: 20170801, end: 20170810
  19. CLINDAMYCIN PHOSPHATE. [Concomitant]
     Active Substance: CLINDAMYCIN PHOSPHATE
     Dosage: 0.45 G, UNK
     Route: 042
     Dates: start: 20170827, end: 20170827
  20. VITAMIN B6 [Concomitant]
     Active Substance: PYRIDOXINE HYDROCHLORIDE
     Dosage: 100 MG, UNK
     Route: 042
     Dates: start: 20170827, end: 20170827
  21. PANTOPRAZOLE [Concomitant]
     Active Substance: PANTOPRAZOLE
     Dosage: 40 MG, UNK
     Route: 042
     Dates: start: 20170810, end: 20171017
  22. POTASSIUM CHLORIDE. [Concomitant]
     Active Substance: POTASSIUM CHLORIDE
     Dosage: 10 ML AND 1 G, UNK
     Dates: start: 20170901, end: 20171017
  23. VALACICLOVIR [Concomitant]
     Active Substance: VALACYCLOVIR HYDROCHLORIDE
     Dosage: 0.5 G, UNK
     Route: 048
     Dates: start: 20170801
  24. COENZYME Q10 [Concomitant]
     Active Substance: UBIDECARENONE
     Dosage: UNK
     Route: 042
     Dates: start: 20170801, end: 20170804
  25. DEXAMETHASONE. [Suspect]
     Active Substance: DEXAMETHASONE
     Indication: PLASMA CELL MYELOMA
     Dosage: 20 MG, PER CHEMO REGIM
     Route: 042
     Dates: start: 20170802, end: 20171101
  26. SODIUM CHLORIDE. [Concomitant]
     Active Substance: SODIUM CHLORIDE
     Dosage: UNK
     Route: 042
     Dates: start: 20170801, end: 20170913
  27. DEXAMETHASONE SODIUM PHOSPHATE. [Concomitant]
     Active Substance: DEXAMETHASONE SODIUM PHOSPHATE
     Dosage: 10 MG, UNK
     Route: 042
     Dates: start: 20170827, end: 20170827
  28. VORICONAZOLE. [Concomitant]
     Active Substance: VORICONAZOLE
     Dosage: 0.2 G, UNK
     Dates: start: 20170831, end: 20170913
  29. ITRACONAZOLE. [Concomitant]
     Active Substance: ITRACONAZOLE
     Dosage: 0.2 G, UNK
     Route: 048
     Dates: start: 20170913, end: 20170920
  30. AMBROXOL [Concomitant]
     Active Substance: AMBROXOL
     Dosage: 60 MG, UNK
     Route: 048
     Dates: start: 20170910, end: 20170910
  31. METHOXYPHENAMINE [Concomitant]
     Active Substance: METHOXYPHENAMINE
     Dosage: 2 UNK, UNK
     Route: 048
     Dates: start: 20170910, end: 20170910
  32. SODIUM BICARBONATE. [Concomitant]
     Active Substance: SODIUM BICARBONATE
     Dosage: 125 ML, UNK
     Route: 042
     Dates: start: 20170801, end: 20170804

REACTIONS (2)
  - Plasma cell myeloma [Not Recovered/Not Resolved]
  - Lung infection [Not Recovered/Not Resolved]

NARRATIVE: CASE EVENT DATE: 20171108
